FAERS Safety Report 9347071 (Version 1)
Quarter: 2013Q2

REPORT INFORMATION
  Report Type: Report from Study
  Country: FR (occurrence: FR)
  Receive Date: 20130613
  Receipt Date: 20130613
  Transmission Date: 20140414
  Serious: Yes (Other)
  Sender: FDA-Public Use
  Company Number: FR-GLAXOSMITHKLINE-B0894663A

PATIENT
  Age: 65 Year
  Sex: Male

DRUGS (1)
  1. REVOLADE [Suspect]
     Indication: IDIOPATHIC THROMBOCYTOPENIC PURPURA
     Dosage: 75MG PER DAY
     Route: 048

REACTIONS (4)
  - Haemorrhagic disorder [Unknown]
  - Myalgia [Unknown]
  - Petechiae [Unknown]
  - Off label use [Unknown]
